FAERS Safety Report 17525088 (Version 1)
Quarter: 2020Q1

REPORT INFORMATION
  Report Type: Spontaneous
  Country: FR (occurrence: FR)
  Receive Date: 20200310
  Receipt Date: 20200310
  Transmission Date: 20200409
  Serious: Yes (Hospitalization)
  Sender: FDA-Public Use
  Company Number: FR-BAYER-2020-038721

PATIENT
  Age: 73 Year
  Sex: Male
  Weight: 77.5 kg

DRUGS (12)
  1. TARDYFERON [Concomitant]
     Active Substance: FERROUS SULFATE
     Indication: IRON DEFICIENCY
     Dosage: 240 MG, QD
     Route: 048
  2. FLAMMACERIUM [Concomitant]
     Indication: WOUND
     Dosage: UNK
     Route: 046
     Dates: start: 20200113, end: 20200202
  3. AMIKLIN [AMIKACIN] [Concomitant]
     Indication: PSEUDOMONAS INFECTION
     Dosage: 2100 MG, QD
     Route: 041
     Dates: start: 20200112, end: 20200115
  4. ZERBAXA [Suspect]
     Active Substance: CEFTOLOZANE SULFATE\TAZOBACTAM SODIUM
     Indication: PSEUDOMONAS INFECTION
     Dosage: 6 G, QD
     Route: 041
     Dates: start: 20200112, end: 20200128
  5. DOLIPRANE [Concomitant]
     Active Substance: ACETAMINOPHEN
     Indication: PAIN
     Dosage: 3 G, QD
     Route: 048
  6. TERCIAN [CYAMEMAZINE] [Concomitant]
     Active Substance: CYAMEMAZINE
     Indication: ANXIETY
     Dosage: 20 DROP, QD
     Route: 048
  7. EFFEXOR [Concomitant]
     Active Substance: VENLAFAXINE HYDROCHLORIDE
     Indication: DEPRESSION
     Dosage: 75 MG, QD
     Route: 048
  8. OXYNORM [Concomitant]
     Active Substance: OXYCODONE HYDROCHLORIDE
     Indication: PAIN
     Dosage: 20 MG, QD
     Route: 048
  9. SPECIAFOLDINE [Concomitant]
     Active Substance: FOLIC ACID
     Indication: IRON DEFICIENCY
     Dosage: 5 MG, QD
     Route: 048
  10. CIPROFLOXACIN. [Suspect]
     Active Substance: CIPROFLOXACIN
     Indication: PSEUDOMONAS INFECTION
     Dosage: 2250 MG, QD
     Route: 048
     Dates: start: 20200115, end: 20200128
  11. SERESTA [Concomitant]
     Active Substance: OXAZEPAM
     Indication: ANXIETY
     Dosage: 30 MG, QD
     Route: 048
  12. MOVICOL [MACROGOL 3350;POTASSIUM CHLORIDE;SODIUM BICARBONATE;SODIU [Concomitant]
     Indication: CONSTIPATION
     Dosage: UNK
     Route: 048

REACTIONS (2)
  - Thrombocytopenia [Recovered/Resolved]
  - Lymphopenia [Not Recovered/Not Resolved]

NARRATIVE: CASE EVENT DATE: 20200113
